FAERS Safety Report 20998517 (Version 3)
Quarter: 2022Q3

REPORT INFORMATION
  Report Type: Spontaneous
  Country: SE (occurrence: SE)
  Receive Date: 20220623
  Receipt Date: 20220711
  Transmission Date: 20221027
  Serious: Yes (Other)
  Sender: FDA-Public Use
  Company Number: None

PATIENT
  Age: 32 Year
  Sex: Female
  Weight: 76 kg

DRUGS (7)
  1. CILASTATIN SODIUM\IMIPENEM [Suspect]
     Active Substance: CILASTATIN SODIUM\IMIPENEM
     Indication: Febrile neutropenia
     Dosage: 3 (UNITS NOT REPORTED), QD, STATED DOSAGE: 1 GRAM THREE TIMES DAILY
     Dates: start: 20220516
  2. AMBISOME [Suspect]
     Active Substance: AMPHOTERICIN B
     Indication: Febrile neutropenia
     Dosage: 300 MILLIGRAM, ONCE DAILY (QD)
     Dates: start: 20220513, end: 20220520
  3. DAUNORUBICIN [Suspect]
     Active Substance: DAUNORUBICIN
     Indication: Acute myeloid leukaemia
     Dosage: DOSAGE: 60 MG/M2 ONCE DAILY FOR THREE DAYS
     Dates: start: 20220428, end: 20220430
  4. CYTARABINE [Suspect]
     Active Substance: CYTARABINE
     Indication: Acute myeloid leukaemia
     Dosage: DOSAGE: 1000 MG/M2 TWICE DAILY FOR FIVE DAYS
     Dates: start: 20220428, end: 20220502
  5. PARACETAMOL APOFRI [Concomitant]
     Dosage: 500 MG 1 TABLET 1-6 TIMES DAILY AS NEEDED
     Route: 048
     Dates: start: 20220423
  6. MORFIN ABCUR [Concomitant]
     Dosage: DOSAGE: 1 MG PER HOUR
     Dates: start: 20220512
  7. VANCOMYCIN STRIDES [Concomitant]
     Dosage: 125 MG 1 TABLET 4 TIMES DAILY
     Dates: start: 20220512

REACTIONS (3)
  - Foetal growth restriction [Unknown]
  - Maternal exposure during pregnancy [Unknown]
  - Foetal death [Unknown]

NARRATIVE: CASE EVENT DATE: 20220517
